FAERS Safety Report 9150203 (Version 1)
Quarter: 2013Q1

REPORT INFORMATION
  Report Type: Spontaneous
  Country: US (occurrence: US)
  Receive Date: 20130308
  Receipt Date: 20130308
  Transmission Date: 20140127
  Serious: Yes (Other)
  Sender: FDA-Public Use
  Company Number: US-ROCHE-1192903

PATIENT
  Sex: Male
  Weight: 80 kg

DRUGS (1)
  1. ACTIVASE [Suspect]
     Indication: CEREBROVASCULAR ACCIDENT
     Route: 042
     Dates: start: 20130218, end: 20130218

REACTIONS (4)
  - Haemorrhage intracranial [Unknown]
  - Headache [Unknown]
  - Haemorrhagic infarction [Unknown]
  - General physical health deterioration [Unknown]
